FAERS Safety Report 20340089 (Version 1)
Quarter: 2022Q1

REPORT INFORMATION
  Report Type: Spontaneous
  Country: US (occurrence: US)
  Receive Date: 20220117
  Receipt Date: 20220117
  Transmission Date: 20220424
  Serious: Yes (Death, Hospitalization, Other)
  Sender: FDA-Public Use
  Company Number: US-APOTEX-2022AP001951

PATIENT
  Age: 15 Month
  Sex: Female

DRUGS (1)
  1. FENTANYL [Suspect]
     Active Substance: FENTANYL
     Indication: Product used for unknown indication
     Dosage: UNK
     Route: 048

REACTIONS (7)
  - Unresponsive to stimuli [Fatal]
  - Hypersomnia [Fatal]
  - Brain death [Fatal]
  - Brain oedema [Fatal]
  - Brain herniation [Fatal]
  - Seizure [Recovered/Resolved]
  - Accidental exposure to product [Fatal]

NARRATIVE: CASE EVENT DATE: 20200101
